FAERS Safety Report 10076555 (Version 1)
Quarter: 2014Q2

REPORT INFORMATION
  Report Type: Spontaneous
  Country: US (occurrence: None)
  Receive Date: 20140411
  Receipt Date: 20140411
  Transmission Date: 20141212
  Serious: Yes (Other)
  Sender: FDA-Public Use
  Company Number: None

PATIENT
  Age: 58 Year
  Sex: Female
  Weight: 54.43 kg

DRUGS (3)
  1. LYRICA [Suspect]
     Indication: FIBROMYALGIA
     Dosage: 1 PILL 3 TIMES A DAY ?THREE TIMES DAILY?TAKEN BY MOUTH
     Route: 048
     Dates: start: 20140214, end: 20140314
  2. LYRICA [Suspect]
     Indication: DIABETIC NEUROPATHY
     Dosage: 1 PILL 3 TIMES A DAY ?THREE TIMES DAILY?TAKEN BY MOUTH
     Route: 048
     Dates: start: 20140214, end: 20140314
  3. LYRICA [Suspect]
     Indication: OSTEOARTHRITIS
     Dosage: 1 PILL 3 TIMES A DAY ?THREE TIMES DAILY?TAKEN BY MOUTH
     Route: 048
     Dates: start: 20140214, end: 20140314

REACTIONS (4)
  - Pain [None]
  - Drooling [None]
  - Tongue biting [None]
  - Drug ineffective [None]
